FAERS Safety Report 4676988-0 (Version None)
Quarter: 2005Q2

REPORT INFORMATION
  Report Type: 
  Country: None (occurrence: None)
  Receive Date: 20050526
  Receipt Date: 20050520
  Transmission Date: 20051028
  Serious: Yes (Disabling, Other)
  Sender: FDA-Public Use
  Company Number: 2005056309

PATIENT
  Age: 58 Year
  Sex: Female

DRUGS (5)
  1. SORTIS (ATORVASTATIN) [Suspect]
     Indication: ILL-DEFINED DISORDER
     Dosage: ORAL
     Route: 048
     Dates: start: 20030701, end: 20030801
  2. SELIPRAN (PRAVASTATIN SODIUM) [Suspect]
     Indication: ILL-DEFINED DISORDER
     Dosage: 10 MG (10 MG, 1 IN 1 D), ORAL
     Route: 048
     Dates: start: 20010110, end: 20010501
  3. PLENDIL [Concomitant]
  4. CO-RENITEN (ENALAPRIL MALEATE, HYDROCHLOROTHIAZIDE) [Concomitant]
  5. LANSOPRAZOLE [Concomitant]

REACTIONS (2)
  - RETINOPATHY [None]
  - VITREOUS DETACHMENT [None]
